FAERS Safety Report 8089049-8 (Version None)
Quarter: 2012Q1

REPORT INFORMATION
  Report Type: 
  Country: None (occurrence: None)
  Receive Date: 20120128
  Receipt Date: 20110804
  Transmission Date: 20120608
  Serious: No
  Sender: FDA-Public Use
  Company Number: US-ABBOTT-11P-163-0702729-00

PATIENT
  Sex: Male
  Weight: 63.56 kg

DRUGS (18)
  1. AVODART [Concomitant]
     Indication: BENIGN PROSTATIC HYPERPLASIA
  2. FOLIC ACID [Concomitant]
     Indication: VITAMIN SUPPLEMENTATION
  3. HUMIRA [Suspect]
     Dates: start: 20101209
  4. LOMOTIL [Concomitant]
     Indication: COLITIS ULCERATIVE
  5. HUMIRA [Suspect]
     Indication: COLITIS ULCERATIVE
     Dates: start: 20101111, end: 20101111
  6. TESTOSTERONE [Concomitant]
     Indication: BLOOD TESTOSTERONE DECREASED
     Route: 050
  7. VITAMIN D [Concomitant]
     Indication: VITAMIN SUPPLEMENTATION
  8. FLOMAX [Concomitant]
     Indication: DYSURIA
  9. VITAMIN E [Concomitant]
     Indication: VITAMIN SUPPLEMENTATION
  10. LEVOTHYROXINE SODIUM [Concomitant]
     Indication: HYPOTHYROIDISM
  11. CHOLINE [Concomitant]
     Indication: MEDICAL DIET
  12. FLOMAX [Concomitant]
     Indication: BENIGN PROSTATIC HYPERPLASIA
  13. HUMIRA [Suspect]
     Dosage: ONE DOSE
     Dates: start: 20101125, end: 20101125
  14. AVODART [Concomitant]
     Indication: DYSURIA
  15. GLUCOSAMINE CHONDROITIN [Concomitant]
     Indication: ARTHROPATHY
  16. VITAMIN B-12 [Concomitant]
     Indication: VITAMIN SUPPLEMENTATION
  17. CALCIUM [Concomitant]
     Indication: MINERAL SUPPLEMENTATION
  18. SELENIUM [Concomitant]
     Indication: MEDICAL DIET

REACTIONS (11)
  - PAIN IN EXTREMITY [None]
  - FAECAL INCONTINENCE [None]
  - DRUG INEFFECTIVE [None]
  - MOVEMENT DISORDER [None]
  - FREQUENT BOWEL MOVEMENTS [None]
  - WEIGHT INCREASED [None]
  - INSOMNIA [None]
  - ASTHENIA [None]
  - COLITIS ULCERATIVE [None]
  - BLOOD IRON DECREASED [None]
  - WEIGHT DECREASED [None]
